FAERS Safety Report 15900043 (Version 3)
Quarter: 2019Q4

REPORT INFORMATION
  Report Type: Report from Study
  Country: US (occurrence: US)
  Receive Date: 20190201
  Receipt Date: 20191202
  Transmission Date: 20200122
  Serious: Yes (Other)
  Sender: FDA-Public Use
  Company Number: US-TESARO-2018-TSO1692-US

PATIENT
  Age: 67 Year
  Sex: Female
  Weight: 75.74 kg

DRUGS (2)
  1. NIRAPARIB [Suspect]
     Active Substance: NIRAPARIB
     Dosage: 100 MG, ONCE A DAY IN THE MORNING WITH FOOD
     Route: 048
  2. NIRAPARIB [Suspect]
     Active Substance: NIRAPARIB
     Indication: OVARIAN CANCER
     Dosage: 100 MG, ONCE A DAY IN THE MORNING WITH FOOD
     Route: 048
     Dates: start: 20171107

REACTIONS (4)
  - Cataract [Recovered/Resolved]
  - Pruritus [Unknown]
  - Laryngitis [Unknown]
  - Rhinorrhoea [Unknown]

NARRATIVE: CASE EVENT DATE: 201811
